FAERS Safety Report 25092449 (Version 1)
Quarter: 2025Q1

REPORT INFORMATION
  Report Type: Spontaneous
  Country: AU (occurrence: AU)
  Receive Date: 20250319
  Receipt Date: 20250319
  Transmission Date: 20250409
  Serious: Yes (Hospitalization, Other)
  Sender: RANBAXY
  Company Number: AU-SUN PHARMACEUTICAL INDUSTRIES LTD-2025R1-498233

PATIENT
  Sex: Male

DRUGS (11)
  1. YONSA [Suspect]
     Active Substance: ABIRATERONE ACETATE
     Indication: Product used for unknown indication
     Dosage: 2 DOSAGE FORM, DAILY (8 MILLIGRAM)
     Route: 065
  2. ALLOPURINOL [Suspect]
     Active Substance: ALLOPURINOL
     Indication: Gout
     Route: 048
  3. AMIODARONE [Suspect]
     Active Substance: AMIODARONE
     Indication: Tachycardia
     Route: 048
  4. ASPIRIN [Suspect]
     Active Substance: ASPIRIN
     Indication: Product used for unknown indication
     Route: 065
  5. CHOLECALCIFEROL [Suspect]
     Active Substance: CHOLECALCIFEROL
     Indication: Vitamin supplementation
     Route: 048
  6. PHENYTOIN [Suspect]
     Active Substance: PHENYTOIN
     Indication: Epilepsy
     Dosage: 400 MILLIGRAM, OD
     Route: 048
  7. ACETAMINOPHEN [Suspect]
     Active Substance: ACETAMINOPHEN
     Indication: Pain
     Route: 048
  8. TAMSULOSIN [Suspect]
     Active Substance: TAMSULOSIN
     Indication: Benign prostatic hyperplasia
     Route: 048
  9. THIAMINE [Suspect]
     Active Substance: THIAMINE
     Indication: Cerebral disorder
     Dosage: 100 MILLIGRAM, OD
     Route: 048
  10. DEGARELIX [Suspect]
     Active Substance: DEGARELIX
     Indication: Prostate cancer
     Route: 058
  11. METHYLPREDNISOLONE [Suspect]
     Active Substance: METHYLPREDNISOLONE

REACTIONS (15)
  - Sepsis [Unknown]
  - Urinary tract infection [Unknown]
  - Mobility decreased [Unknown]
  - Urosepsis [Unknown]
  - Immunosuppression [Unknown]
  - Pemphigoid [Unknown]
  - Condition aggravated [Unknown]
  - Fatigue [Unknown]
  - Therapy cessation [Unknown]
  - Somnolence [Unknown]
  - Dehydration [Unknown]
  - Mouth ulceration [Unknown]
  - Odynophagia [Unknown]
  - Hypotension [Unknown]
  - Gout [Unknown]
